FAERS Safety Report 7041542-2 (Version None)
Quarter: 2010Q4

REPORT INFORMATION
  Report Type: 
  Country: None (occurrence: None)
  Receive Date: 20101013
  Receipt Date: 20100625
  Transmission Date: 20110411
  Serious: No
  Sender: FDA-Public Use
  Company Number: US-ASTRAZENECA-2010SE30021

PATIENT
  Age: 839 Month
  Sex: Male
  Weight: 63.5 kg

DRUGS (2)
  1. SYMBICORT [Suspect]
     Indication: BRONCHITIS
     Dosage: 160/4.5 MCG 2 PUFFS BID
     Route: 055
     Dates: start: 20100401, end: 20100624
  2. PREDNISONE [Concomitant]
     Dosage: PRN

REACTIONS (2)
  - DRUG DOSE OMISSION [None]
  - DYSPNOEA [None]
